FAERS Safety Report 21355674 (Version 1)
Quarter: 2022Q3

REPORT INFORMATION
  Report Type: Spontaneous
  Country: HU (occurrence: None)
  Receive Date: 20220920
  Receipt Date: 20220920
  Transmission Date: 20221026
  Serious: Yes (Other)
  Sender: FDA-Public Use
  Company Number: HU-Merck Healthcare KGaA-9351875

PATIENT
  Age: 41 Year
  Sex: Female

DRUGS (1)
  1. CLADRIBINE [Suspect]
     Active Substance: CLADRIBINE
     Indication: Product used for unknown indication
     Dosage: YEAR ONE THERAPY
     Dates: start: 202110

REACTIONS (1)
  - Cervix carcinoma [Recovered/Resolved]

NARRATIVE: CASE EVENT DATE: 20220301
